FAERS Safety Report 23069164 (Version 2)
Quarter: 2023Q4

REPORT INFORMATION
  Report Type: Report from Study
  Country: CN (occurrence: CN)
  Receive Date: 20231016
  Receipt Date: 20231024
  Transmission Date: 20240110
  Serious: Yes (Hospitalization)
  Sender: FDA-Public Use
  Company Number: CN-PFIZER INC-PV202300165177

PATIENT
  Age: 23 Year
  Sex: Female
  Weight: 55 kg

DRUGS (10)
  1. CYTARABINE [Suspect]
     Active Substance: CYTARABINE
     Indication: Acute myeloid leukaemia
     Dosage: 1600 MG, QD
     Route: 041
     Dates: start: 20230701, end: 20230705
  2. CYTARABINE [Suspect]
     Active Substance: CYTARABINE
     Dosage: 4500 MG, Q12H
     Route: 041
     Dates: start: 20230819, end: 20230819
  3. CYTARABINE [Suspect]
     Active Substance: CYTARABINE
     Dosage: 4500 MG, Q12H
     Route: 041
     Dates: start: 20230821, end: 20230821
  4. CYTARABINE [Suspect]
     Active Substance: CYTARABINE
     Dosage: 4500 MG, Q12H
     Route: 041
     Dates: start: 20230823, end: 20230823
  5. INVESTIGATIONAL PRODUCT [Suspect]
     Active Substance: INVESTIGATIONAL PRODUCT
     Indication: Acute myeloid leukaemia
     Dosage: UNK
     Dates: start: 20230630, end: 20230630
  6. INVESTIGATIONAL PRODUCT [Suspect]
     Active Substance: INVESTIGATIONAL PRODUCT
     Dosage: UNK
     Dates: start: 20230701, end: 20230707
  7. INVESTIGATIONAL PRODUCT [Suspect]
     Active Substance: INVESTIGATIONAL PRODUCT
     Dosage: UNK
     Dates: start: 20230818, end: 20230818
  8. INVESTIGATIONAL PRODUCT [Suspect]
     Active Substance: INVESTIGATIONAL PRODUCT
     Dosage: UNK
     Dates: start: 20230819, end: 20230825
  9. MITOXANTRONE [Suspect]
     Active Substance: MITOXANTRONE HYDROCHLORIDE
     Indication: Acute myeloid leukaemia
     Dosage: 9.6 MG, 1X/DAY (25/12.5 MG/ML)
     Route: 041
     Dates: start: 20230701, end: 20230705
  10. ETOPOSIDE [Suspect]
     Active Substance: ETOPOSIDE
     Indication: Acute myeloid leukaemia
     Dosage: 160 MG, 1X/DAY (0.1/5 G/ML)
     Route: 041
     Dates: start: 20230701, end: 20230703

REACTIONS (2)
  - Endometriosis [Recovered/Resolved]
  - Condition aggravated [Recovered/Resolved]

NARRATIVE: CASE EVENT DATE: 20230906
